FAERS Safety Report 25984657 (Version 1)
Quarter: 2025Q4

REPORT INFORMATION
  Report Type: Spontaneous
  Country: GB (occurrence: GB)
  Receive Date: 20251031
  Receipt Date: 20251031
  Transmission Date: 20260117
  Serious: Yes (Other)
  Sender: MERCK SHARP & DOHME LLC
  Company Number: GB-009507513-2344708

PATIENT

DRUGS (1)
  1. NOXAFIL [Suspect]
     Active Substance: POSACONAZOLE
     Dosage: TIME INTERVAL: 0.33333333 DAYS: NOXAFIL (POSACONAZOLE) 40MG/ML SUSPENSION - 72MG TDS

REACTIONS (3)
  - Gastrointestinal tube insertion [Unknown]
  - Metabolic disorder [Unknown]
  - Device breakage [Unknown]
